FAERS Safety Report 9306925 (Version 1)
Quarter: 2013Q1

REPORT INFORMATION
  Report Type: Spontaneous
  Country: GB (occurrence: None)
  Receive Date: 20130307
  Receipt Date: 20130307
  Transmission Date: 20140127
  Serious: Yes (Other)
  Sender: FDA-Public Use
  Company Number: GER/UKI/13/0028110

PATIENT
  Age: 2 Decade
  Sex: Female

DRUGS (1)
  1. SERTRALINE  (SERTRALINE) [Suspect]
     Indication: DEPRESSION
     Dosage: 100  MG,  1  IN  1  D,  ORAL
     Route: 048

REACTIONS (3)
  - Pregnancy [None]
  - Abortion spontaneous [None]
  - Exposure during pregnancy [None]
